FAERS Safety Report 8223909-X (Version None)
Quarter: 2012Q1

REPORT INFORMATION
  Report Type: 
  Country: None (occurrence: None)
  Receive Date: 20120312
  Receipt Date: 20120227
  Transmission Date: 20120608
  Serious: Yes (Death, Life-Threatening, Hospitalization, Other)
  Sender: FDA-Public Use
  Company Number: 2009AL003509

PATIENT
  Age: 90 Year
  Sex: Female

DRUGS (16)
  1. PRED FORTE (15 ML) [Concomitant]
  2. DIGOXIN [Suspect]
     Indication: CARDIAC FAILURE CONGESTIVE
     Dosage: 0.125 MG;PO
     Route: 048
     Dates: start: 20011128, end: 20070519
  3. PERIACTIN (4MG) [Concomitant]
  4. ATARAX [Concomitant]
  5. TOPROL-XL [Concomitant]
  6. DYAZIDE [Concomitant]
  7. LASIX [Concomitant]
  8. MEGESTROL ACETATE [Concomitant]
  9. CATAPRES [Concomitant]
  10. CIPROFLOXACIN [Concomitant]
  11. TRIAMCINOLONE [Concomitant]
  12. INFLAMASE FORTE [Concomitant]
  13. CAPTOPRIL [Concomitant]
  14. CYPROHEPTADINE HCL [Concomitant]
  15. PLAVIX [Concomitant]
  16. ZANTAC 150 [Concomitant]

REACTIONS (6)
  - CARDIO-RESPIRATORY ARREST [None]
  - ARTERIOSCLEROSIS CORONARY ARTERY [None]
  - MULTIPLE INJURIES [None]
  - SURGERY [None]
  - ECONOMIC PROBLEM [None]
  - UNEVALUABLE EVENT [None]
